FAERS Safety Report 8198403-5 (Version None)
Quarter: 2012Q1

REPORT INFORMATION
  Report Type: 
  Country: None (occurrence: None)
  Receive Date: 20120307
  Receipt Date: 20120223
  Transmission Date: 20120608
  Serious: Yes (Other)
  Sender: FDA-Public Use
  Company Number: 2012MA002471

PATIENT
  Age: 89 Year
  Sex: Female
  Weight: 80.2867 kg

DRUGS (16)
  1. DIOVAN [Concomitant]
  2. UNIRETIC [Concomitant]
  3. ANTIVERT [Concomitant]
  4. ZEGERID [Concomitant]
  5. ZYRTEC [Concomitant]
  6. BENICAR [Concomitant]
  7. LEXAPRO [Concomitant]
  8. AVELOX [Concomitant]
  9. DIGOXIN [Suspect]
     Indication: PRODUCT USED FOR UNKNOWN INDICATION
     Dosage: 0.125 MG
     Dates: start: 20050620, end: 20070220
  10. KEPPRA [Concomitant]
  11. COZAAR [Concomitant]
  12. VYTORIN [Concomitant]
  13. CELEBREX [Concomitant]
  14. HYZAAR [Concomitant]
  15. IMITREX [Concomitant]
  16. NASONEX [Concomitant]

REACTIONS (25)
  - PAIN [None]
  - MIGRAINE [None]
  - LIGAMENT SPRAIN [None]
  - HEADACHE [None]
  - HYPOAESTHESIA [None]
  - HYPERTENSION [None]
  - BALANCE DISORDER [None]
  - ANHEDONIA [None]
  - ARRHYTHMIA [None]
  - BLOOD CHOLESTEROL INCREASED [None]
  - LOW DENSITY LIPOPROTEIN INCREASED [None]
  - TACHYCARDIA [None]
  - ABDOMINAL PAIN [None]
  - PRODUCTIVE COUGH [None]
  - NUCLEAR MAGNETIC RESONANCE IMAGING BRAIN ABNORMAL [None]
  - NASAL TURBINATE ABNORMALITY [None]
  - DEPRESSION [None]
  - DIZZINESS [None]
  - WEIGHT DECREASED [None]
  - JOINT SWELLING [None]
  - RHINITIS ALLERGIC [None]
  - BLOOD TRIGLYCERIDES INCREASED [None]
  - LABYRINTHITIS [None]
  - ARTHRALGIA [None]
  - GAIT DISTURBANCE [None]
